FAERS Safety Report 14176106 (Version 6)
Quarter: 2018Q1

REPORT INFORMATION
  Report Type: Report from Study
  Country: US (occurrence: US)
  Receive Date: 20171109
  Receipt Date: 20180326
  Transmission Date: 20180508
  Serious: Yes (Hospitalization, Other)
  Sender: FDA-Public Use
  Company Number: PHHO2017US015225

PATIENT
  Age: 43 Year
  Sex: Male
  Weight: 90.71 kg

DRUGS (13)
  1. GSK1120212 [Suspect]
     Active Substance: TRAMETINIB
     Dosage: 1.5 MG, BID
     Route: 048
     Dates: start: 20171219, end: 20180102
  2. MELATONIN [Concomitant]
     Active Substance: MELATONIN
     Indication: PRODUCT USED FOR UNKNOWN INDICATION
     Dosage: 1 DF (TABLET 1.5MG), AS DIRECTED
     Route: 048
     Dates: start: 20170101
  3. LORAZEPAM. [Concomitant]
     Active Substance: LORAZEPAM
     Indication: PRODUCT USED FOR UNKNOWN INDICATION
     Dosage: 1 DF (0.5MG), AS DIRECTED
     Route: 048
     Dates: start: 20170101
  4. HYDROXYCHLOROQUINE [Suspect]
     Active Substance: HYDROXYCHLOROQUINE
     Dosage: 600 MG, BID
     Route: 048
     Dates: start: 20171219, end: 20171231
  5. GSK1120212 [Suspect]
     Active Substance: TRAMETINIB
     Indication: MALIGNANT MELANOMA
     Dosage: 1 DF (2MG), BID
     Route: 048
     Dates: start: 20171002, end: 20171026
  6. SERTRALINE [Concomitant]
     Active Substance: SERTRALINE HYDROCHLORIDE
     Indication: PRODUCT USED FOR UNKNOWN INDICATION
     Dosage: 1 DF (50MG TABLET), AS DIRECTED
     Route: 048
     Dates: start: 20100101
  7. HYDROXYCHLOROQUINE [Suspect]
     Active Substance: HYDROXYCHLOROQUINE
     Indication: MALIGNANT MELANOMA
     Dosage: 600 MG, BID
     Route: 048
     Dates: start: 20171010, end: 20171026
  8. PEMBROLIZUMAB. [Suspect]
     Active Substance: PEMBROLIZUMAB
     Indication: PRODUCT USED FOR UNKNOWN INDICATION
     Dosage: UNK
     Route: 065
     Dates: start: 20170814, end: 20170905
  9. BENICAR [Concomitant]
     Active Substance: OLMESARTAN MEDOXOMIL
     Indication: PRODUCT USED FOR UNKNOWN INDICATION
     Dosage: 2 DF (TABLET OF 5MG) DAILY
     Route: 048
     Dates: start: 20171002
  10. GSK2118436 [Suspect]
     Active Substance: DABRAFENIB
     Indication: MALIGNANT MELANOMA
     Dosage: 2 DF (75MG), QD
     Route: 048
     Dates: start: 20171002, end: 20171026
  11. GSK2118436 [Suspect]
     Active Substance: DABRAFENIB
     Dosage: 2 DF (75MG), QD
     Route: 048
     Dates: start: 20171219, end: 20171229
  12. ONDANSETRON HCL [Concomitant]
     Active Substance: ONDANSETRON HYDROCHLORIDE
     Indication: PRODUCT USED FOR UNKNOWN INDICATION
     Dosage: 1 DF (TABLET OF 8MG), QID PRN
     Route: 048
     Dates: start: 20171023
  13. PROBIOTIC [Concomitant]
     Active Substance: PROBIOTICS NOS
     Indication: PRODUCT USED FOR UNKNOWN INDICATION
     Dosage: 1 DF (CAPSULE), QD
     Route: 048

REACTIONS (4)
  - Pyrexia [Not Recovered/Not Resolved]
  - Autoimmune hepatitis [Unknown]
  - Dehydration [Not Recovered/Not Resolved]
  - Bacteraemia [Recovered/Resolved]

NARRATIVE: CASE EVENT DATE: 20171026
